FAERS Safety Report 5340404-6 (Version None)
Quarter: 2007Q2

REPORT INFORMATION
  Report Type: 
  Country: None (occurrence: None)
  Receive Date: 20070405
  Receipt Date: 20061228
  Transmission Date: 20071010
  Serious: No
  Sender: FDA-Public Use
  Company Number: US200612004515

PATIENT
  Age: 47 Year
  Sex: Male

DRUGS (5)
  1. CYMBALTA [Suspect]
     Indication: PAIN
     Dosage: SEE IMAGE
     Dates: start: 20061206, end: 20061228
  2. CYMBALTA [Suspect]
     Indication: PAIN
     Dosage: SEE IMAGE
     Dates: start: 20050101
  3. PERCOCET [Concomitant]
  4. VALIUM /NET/ (DIAZEPAM) [Concomitant]
  5. ELAVIL [Concomitant]

REACTIONS (6)
  - EYE PRURITUS [None]
  - HYPERHIDROSIS [None]
  - HYPERSENSITIVITY [None]
  - JOINT SWELLING [None]
  - PRURITUS [None]
  - URTICARIA [None]
